FAERS Safety Report 5201601-3 (Version None)
Quarter: 2006Q4

REPORT INFORMATION
  Report Type: 
  Country: None (occurrence: None)
  Receive Date: 20061006
  Receipt Date: 20050905
  Transmission Date: 20070319
  Serious: Yes (Hospitalization, Other)
  Sender: FDA-Public Use
  Company Number: 200511845BWH

PATIENT
  Age: 60 Year
  Sex: Female

DRUGS (2)
  1. CIPROFLOXACIN [Suspect]
     Indication: URINARY TRACT INFECTION
  2. MEDICATIONS FOR ARTHRITIS [Concomitant]

REACTIONS (1)
  - CHEST PAIN [None]
